FAERS Safety Report 9347590 (Version 2)
Quarter: 2013Q3

REPORT INFORMATION
  Report Type: Spontaneous
  Country: US (occurrence: US)
  Receive Date: 20130614
  Receipt Date: 20130708
  Transmission Date: 20140515
  Serious: No
  Sender: FDA-Public Use
  Company Number: US-BIOGENIDEC-2013BI050475

PATIENT
  Age: 33 Year
  Sex: Female

DRUGS (5)
  1. AVONEX [Suspect]
     Indication: MULTIPLE SCLEROSIS
     Route: 030
     Dates: start: 20121220
  2. IBUPROFEN [Concomitant]
     Indication: SKIN WARM
  3. IBUPROFEN [Concomitant]
     Indication: NASAL CONGESTION
  4. IBUPROFEN [Concomitant]
     Indication: SNEEZING
  5. IBUPROFEN [Concomitant]
     Indication: INFLUENZA LIKE ILLNESS

REACTIONS (4)
  - Sneezing [Not Recovered/Not Resolved]
  - Nasal congestion [Not Recovered/Not Resolved]
  - Skin warm [Not Recovered/Not Resolved]
  - Influenza like illness [Recovered/Resolved]
